FAERS Safety Report 8862665 (Version 1)
Quarter: 2012Q4

REPORT INFORMATION
  Report Type: 
  Country: US (occurrence: US)
  Receive Date: 20121026
  Receipt Date: 20121026
  Transmission Date: 20130627
  Serious: Yes (Hospitalization)
  Sender: FDA-Public Use
  Company Number: US-PFIZER INC-2012267892

PATIENT
  Age: 59 Year
  Sex: Male
  Weight: 124 kg

DRUGS (1)
  1. LIPITOR [Suspect]
     Indication: HYPERLIPIDAEMIA
     Dosage: 20 mg, daily
     Dates: start: 201008

REACTIONS (1)
  - Cerebrovascular accident [Unknown]
